FAERS Safety Report 7305062-X (Version None)
Quarter: 2011Q1

REPORT INFORMATION
  Report Type: 
  Country: None (occurrence: None)
  Receive Date: 20110222
  Receipt Date: 20110217
  Transmission Date: 20110831
  Serious: Yes (Hospitalization, Other)
  Sender: FDA-Public Use
  Company Number: US-B.I. PHARMACEUTICALS,INC./RIDGEFIELD-2008-BP-01730BP

PATIENT
  Sex: Female

DRUGS (2)
  1. SPIRIVA [Suspect]
     Indication: EMPHYSEMA
  2. SPIRIVA [Suspect]
     Indication: DYSPNOEA
     Dosage: 18 MCG
     Route: 055
     Dates: start: 20050101

REACTIONS (9)
  - CARDIAC DISORDER [None]
  - DRY MOUTH [None]
  - FEELING COLD [None]
  - URINARY RETENTION [None]
  - LUNG NEOPLASM MALIGNANT [None]
  - PALPITATIONS [None]
  - VITREOUS FLOATERS [None]
  - DYSPNOEA [None]
  - URINARY TRACT INFECTION [None]
